FAERS Safety Report 8936586 (Version 1)
Quarter: 2012Q4

REPORT INFORMATION
  Report Type: 
  Country: MX (occurrence: MX)
  Receive Date: 20121130
  Receipt Date: 20121130
  Transmission Date: 20130627
  Serious: Yes (Death, Life-Threatening, Hospitalization)
  Sender: FDA-Public Use
  Company Number: PHHY2012MX109855

PATIENT
  Age: 72 Year
  Sex: Female

DRUGS (4)
  1. RASILEZ [Suspect]
     Indication: HYPERTENSION
     Dosage: 1DF (150 mg) daily
     Route: 048
     Dates: end: 20121115
  2. TAFIL [Concomitant]
     Indication: DEPRESSION
     Dosage: 1 DF at night
  3. FLUOXAC [Concomitant]
     Indication: DEPRESSION
     Dosage: 1 DF at night
     Dates: end: 201211
  4. DIGOXIN [Concomitant]
     Indication: CARDIAC DISORDER
     Dosage: 0.25 DF, UNK
     Dates: start: 2007, end: 201211

REACTIONS (4)
  - Cerebrovascular accident [Fatal]
  - Loss of consciousness [Fatal]
  - Malaise [Fatal]
  - Syncope [Fatal]
